FAERS Safety Report 8540942 (Version 4)
Quarter: 2013Q1

REPORT INFORMATION
  Report Type: Spontaneous
  Country: US (occurrence: US)
  Receive Date: 20120502
  Receipt Date: 20130109
  Transmission Date: 20140127
  Serious: Yes (Life-Threatening, Congenital Anomaly, Other)
  Sender: FDA-Public Use
  Company Number: US-PFIZER INC-2012044626

PATIENT
  Sex: Male

DRUGS (13)
  1. ZOLOFT [Suspect]
     Indication: DEPRESSION
     Dosage: 25 MG, DAILY
     Route: 064
     Dates: start: 20080926
  2. ZOLOFT [Suspect]
     Indication: ANXIETY
     Dosage: 50 MG, DAILY
     Route: 064
     Dates: start: 20080926
  3. ZOLOFT [Suspect]
     Dosage: 100 MG, 1X/DAY
     Route: 064
     Dates: start: 20081121
  4. ZOLOFT [Suspect]
     Dosage: 100 MG, 1X/DAY
     Route: 064
     Dates: start: 20090528
  5. EFFEXOR [Suspect]
     Dosage: UNK
     Route: 064
     Dates: start: 200805
  6. SERTRALINE HCL [Suspect]
     Dosage: 25 MG, UNK
     Route: 064
     Dates: start: 20080926
  7. SERTRALINE HCL [Suspect]
     Dosage: 50 MG, UNK
     Route: 064
     Dates: start: 20080926
  8. SERTRALINE HCL [Suspect]
     Dosage: 100 MG, UNK
     Route: 064
     Dates: start: 20090528
  9. AMOXICILLIN [Concomitant]
     Indication: SINUSITIS
     Dosage: UNK
     Route: 064
  10. EFFEXOR-XR [Concomitant]
     Indication: ANXIETY
     Dosage: 75 MG, 1X/DAY
     Route: 064
     Dates: start: 20080920, end: 20090331
  11. PRENATAL VITAMINS [Concomitant]
     Dosage: UNK
     Route: 064
  12. TYLENOL WITH CODEINE [Concomitant]
     Indication: BACK PAIN
     Dosage: UNK
     Route: 064
  13. PROGESTERONE [Concomitant]
     Dosage: 50 MG, UNK
     Route: 064

REACTIONS (4)
  - Maternal exposure during pregnancy [Unknown]
  - Heart disease congenital [Unknown]
  - Congenital anomaly [Unknown]
  - Coarctation of the aorta [Unknown]
